FAERS Safety Report 11101103 (Version 1)
Quarter: 2015Q2

REPORT INFORMATION
  Report Type: Spontaneous
  Country: US (occurrence: US)
  Receive Date: 20150508
  Receipt Date: 20150508
  Transmission Date: 20150821
  Serious: Yes (Other)
  Sender: FDA-Public Use
  Company Number: US-BAXTER-2015BAX023422

PATIENT
  Age: 15 Year
  Sex: Male

DRUGS (3)
  1. VANCOMYCIN INJECTION, USP [Suspect]
     Active Substance: VANCOMYCIN
     Indication: ENDOCARDITIS STAPHYLOCOCCAL
     Route: 042
  2. GENTAMICIN SULFATE IN 0.9% SODIUM CHLORIDE INJECTION [Suspect]
     Active Substance: GENTAMICIN SULFATE
     Indication: ENDOCARDITIS STAPHYLOCOCCAL
     Route: 042
  3. OXACILLIN [Suspect]
     Active Substance: OXACILLIN SODIUM
     Indication: ENDOCARDITIS STAPHYLOCOCCAL
     Route: 042

REACTIONS (3)
  - Pyrexia [Recovered/Resolved]
  - Cerebellar embolism [Recovered/Resolved]
  - Cerebral artery embolism [Recovered/Resolved]
